FAERS Safety Report 25910224 (Version 1)
Quarter: 2025Q4

REPORT INFORMATION
  Report Type: Spontaneous
  Country: EU (occurrence: EU)
  Receive Date: 20251012
  Receipt Date: 20251012
  Transmission Date: 20260117
  Serious: Yes (Hospitalization, Other)
  Sender: AMGEN
  Company Number: EU-AMGEN-NLDSP2025198747

PATIENT

DRUGS (3)
  1. ETANERCEPT [Suspect]
     Active Substance: ETANERCEPT
     Indication: Psoriasis
     Dosage: UNK
     Route: 065
  2. ADALIMUMAB [Suspect]
     Active Substance: ADALIMUMAB
     Indication: Psoriasis
     Dosage: UNK
     Route: 065
  3. USTEKINUMAB [Suspect]
     Active Substance: USTEKINUMAB
     Indication: Psoriasis
     Dosage: UNK
     Route: 065

REACTIONS (40)
  - Cholesteatoma [Unknown]
  - Appendicitis [Unknown]
  - Abdominal pain [Unknown]
  - Sinusitis [Unknown]
  - Psoriasis [Unknown]
  - Hypersensitivity [Unknown]
  - Inner ear disorder [Unknown]
  - Ear disorder [Unknown]
  - Gastrointestinal disorder [Unknown]
  - Immune system disorder [Unknown]
  - Wound complication [Unknown]
  - Neoplasm malignant [Unknown]
  - Upper respiratory tract infection [Unknown]
  - Breast disorder [Unknown]
  - Skin disorder [Unknown]
  - Surgery [Unknown]
  - Reproductive tract disorder [Unknown]
  - Injury [Unknown]
  - Unevaluable event [Unknown]
  - Eye disorder [Unknown]
  - Endocrine disorder [Unknown]
  - Hepatobiliary disease [Unknown]
  - Malnutrition [Unknown]
  - Connective tissue disorder [Unknown]
  - Musculoskeletal disorder [Unknown]
  - Nervous system disorder [Unknown]
  - Mental disorder [Unknown]
  - Drug ineffective [Unknown]
  - Respiratory disorder [Unknown]
  - Renal disorder [Unknown]
  - Cardiac disorder [Unknown]
  - Lymphatic disorder [Unknown]
  - Blood disorder [Unknown]
  - Fatigue [Unknown]
  - Injection site reaction [Unknown]
  - Investigation [Unknown]
  - Metabolic disorder [Unknown]
  - Mediastinal disorder [Unknown]
  - Social problem [Unknown]
  - Angiopathy [Unknown]
